FAERS Safety Report 7554703-0 (Version None)
Quarter: 2011Q2

REPORT INFORMATION
  Report Type: 
  Country: None (occurrence: None)
  Receive Date: 20110615
  Receipt Date: 20110615
  Transmission Date: 20111010
  Serious: No
  Sender: FDA-Public Use
  Company Number: None

PATIENT
  Age: 55 Year
  Sex: Female

DRUGS (1)
  1. AMOXICILLIN AND CLAVULANATE POTASSIUM [Suspect]
     Dates: start: 20100120, end: 20100130

REACTIONS (10)
  - WEIGHT DECREASED [None]
  - NAUSEA [None]
  - CHROMATURIA [None]
  - ABDOMINAL PAIN [None]
  - PRURITUS [None]
  - ALANINE AMINOTRANSFERASE INCREASED [None]
  - BLOOD BILIRUBIN INCREASED [None]
  - ASPARTATE AMINOTRANSFERASE INCREASED [None]
  - HEPATOTOXICITY [None]
  - BLOOD ALKALINE PHOSPHATASE INCREASED [None]
